FAERS Safety Report 4965799-4 (Version None)
Quarter: 2006Q2

REPORT INFORMATION
  Report Type: 
  Country: None (occurrence: None)
  Receive Date: 20060406
  Receipt Date: 20060406
  Transmission Date: 20061013
  Serious: Yes (Hospitalization)
  Sender: FDA-Public Use
  Company Number: None

PATIENT
  Age: 49 Year
  Sex: Male
  Weight: 106.5953 kg

DRUGS (1)
  1. ENBREL [Suspect]
     Indication: RHEUMATOID ARTHRITIS
     Dosage: 50 MG SC QW
     Route: 058
     Dates: start: 20041101

REACTIONS (3)
  - BACTERAEMIA [None]
  - BETA HAEMOLYTIC STREPTOCOCCAL INFECTION [None]
  - PNEUMONIA STREPTOCOCCAL [None]
